FAERS Safety Report 7094728-5 (Version None)
Quarter: 2010Q4

REPORT INFORMATION
  Report Type: 
  Country: None (occurrence: None)
  Receive Date: 20101110
  Receipt Date: 20080626
  Transmission Date: 20110411
  Serious: No
  Sender: FDA-Public Use
  Company Number: US-KINGPHARMUSA00001-K200800748

PATIENT
  Sex: Female
  Weight: 84.807 kg

DRUGS (4)
  1. LEVOXYL [Suspect]
     Dosage: 50 MCG, QD
     Route: 048
     Dates: start: 20050101, end: 20050101
  2. LEVOXYL [Suspect]
     Dosage: 25 MCG, QD
     Route: 048
     Dates: start: 20080401, end: 20080625
  3. HYDROCHLOROTHIAZIDE [Concomitant]
     Indication: HYPERTENSION
     Dosage: 25 MG, QD
     Route: 048
  4. DIAZEPAM [Concomitant]
     Dosage: 1.25 MG, PRN
     Route: 048

REACTIONS (10)
  - CHEST PAIN [None]
  - DIZZINESS [None]
  - ERYTHEMA [None]
  - EYE DISCHARGE [None]
  - HYPERHIDROSIS [None]
  - HYPERTENSION [None]
  - INTRAOCULAR PRESSURE INCREASED [None]
  - PHOTOPSIA [None]
  - THYROID FUNCTION TEST ABNORMAL [None]
  - VISION BLURRED [None]
